FAERS Safety Report 19124866 (Version 2)
Quarter: 2021Q3

REPORT INFORMATION
  Report Type: Spontaneous
  Country: JP (occurrence: JP)
  Receive Date: 20210413
  Receipt Date: 20210701
  Transmission Date: 20211014
  Serious: Yes (Other)
  Sender: FDA-Public Use
  Company Number: NVSJ2021JP005395

PATIENT
  Age: 50 Year
  Sex: Female

DRUGS (4)
  1. MAYZENT [Suspect]
     Active Substance: SIPONIMOD
     Dosage: 2 MG
     Route: 048
     Dates: start: 20210127
  2. MAYZENT [Suspect]
     Active Substance: SIPONIMOD
     Indication: SECONDARY PROGRESSIVE MULTIPLE SCLEROSIS
     Dosage: 1.5 MG
     Route: 048
     Dates: start: 20210113
  3. MAYZENT [Suspect]
     Active Substance: SIPONIMOD
     Dosage: 0.5 MG
     Route: 048
     Dates: start: 20210115, end: 20210115
  4. MAYZENT [Suspect]
     Active Substance: SIPONIMOD
     Dosage: 1.5 MG
     Route: 048
     Dates: start: 20210308

REACTIONS (6)
  - Dizziness [Not Recovered/Not Resolved]
  - Sensory disturbance [Unknown]
  - Drug ineffective [Unknown]
  - Cerebral ischaemia [Unknown]
  - Balance disorder [Unknown]
  - Fall [Unknown]

NARRATIVE: CASE EVENT DATE: 20210115
